FAERS Safety Report 4556035-1 (Version None)
Quarter: 2005Q1

REPORT INFORMATION
  Report Type: 
  Country: None (occurrence: None)
  Receive Date: 20050119
  Receipt Date: 20050110
  Transmission Date: 20050727
  Serious: Yes (Death, Hospitalization)
  Sender: FDA-Public Use
  Company Number: US-GLAXOSMITHKLINE-A0540826A

PATIENT
  Age: 50 Year
  Sex: Female
  Weight: 61 kg

DRUGS (8)
  1. AUGMENTIN '125' [Suspect]
     Indication: BRONCHITIS
     Dosage: 875MG TWICE PER DAY
     Route: 048
     Dates: start: 20020801, end: 20020901
  2. AXID [Concomitant]
     Dosage: 150MG TWICE PER DAY
     Route: 048
  3. SYNTHROID [Concomitant]
     Dosage: 50MCG FOUR TIMES PER DAY
     Route: 048
  4. MULTI-VITAMIN [Concomitant]
  5. TYLENOL [Concomitant]
  6. PREMARIN [Concomitant]
  7. PROVERA [Concomitant]
  8. DETROL [Concomitant]

REACTIONS (32)
  - ABDOMINAL PAIN [None]
  - ASTHENIA [None]
  - AUTOIMMUNE HEPATITIS [None]
  - BACK PAIN [None]
  - BLOOD GLUCOSE INCREASED [None]
  - CHILLS [None]
  - CHROMATURIA [None]
  - DEHYDRATION [None]
  - DIZZINESS [None]
  - FAECES PALE [None]
  - FATIGUE [None]
  - HEADACHE [None]
  - HEPATIC ENCEPHALOPATHY [None]
  - HEPATIC FAILURE [None]
  - HEPATIC NECROSIS [None]
  - HEPATITIS ACUTE [None]
  - HYPERHIDROSIS [None]
  - INFLUENZA LIKE ILLNESS [None]
  - INTERNATIONAL NORMALISED RATIO INCREASED [None]
  - JAUNDICE [None]
  - LIVER DISORDER [None]
  - LIVER FUNCTION TEST ABNORMAL [None]
  - LIVER TRANSPLANT [None]
  - MULTI-ORGAN FAILURE [None]
  - MYALGIA [None]
  - NAUSEA [None]
  - PANCYTOPENIA [None]
  - PARAESTHESIA [None]
  - PYREXIA [None]
  - RASH [None]
  - SEPSIS [None]
  - VOMITING [None]
